FAERS Safety Report 6726116-2 (Version None)
Quarter: 2010Q2

REPORT INFORMATION
  Report Type: 
  Country: None (occurrence: None)
  Receive Date: 20100514
  Receipt Date: 20100510
  Transmission Date: 20101027
  Serious: Yes (Other)
  Sender: FDA-Public Use
  Company Number: DE-TEVA-234195ISR

PATIENT
  Age: 20 Year
  Sex: Female

DRUGS (2)
  1. METHOTREXATE [Suspect]
     Route: 037
     Dates: start: 20081001
  2. IMATINIB [Suspect]

REACTIONS (2)
  - CNS VENTRICULITIS [None]
  - HYDROCEPHALUS [None]
